FAERS Safety Report 10231583 (Version 2)
Quarter: 2014Q2

REPORT INFORMATION
  Report Type: Spontaneous
  Country: FR (occurrence: FR)
  Receive Date: 20140611
  Receipt Date: 20140611
  Transmission Date: 20141212
  Serious: Yes (Hospitalization)
  Sender: FDA-Public Use
  Company Number: FR-AMGEN INC.-US196497

PATIENT
  Age: 65 Year
  Sex: Male

DRUGS (7)
  1. ENBREL [Suspect]
     Indication: RHEUMATOID ARTHRITIS
     Dosage: 50 MG, QWK
     Route: 058
     Dates: start: 2004, end: 2008
  2. ENBREL [Suspect]
     Dosage: UNK
     Route: 065
     Dates: start: 2011
  3. PARACETAMOL [Concomitant]
     Dosage: UNK UNK, UNK
     Route: 048
  4. LANZOR [Concomitant]
     Dosage: 15 MG, QD
     Route: 048
  5. ANETHOLE TRITHIONE [Concomitant]
     Dosage: UNK UNK, UNK
     Route: 048
  6. METHOTREXATE [Concomitant]
     Dosage: 10 MG, QWK
     Route: 048
     Dates: start: 200205, end: 200610
  7. DICLOFENAC SODIUM [Concomitant]
     Dosage: 75 MG, QD
     Route: 048

REACTIONS (3)
  - Renal cyst [Unknown]
  - Metastases to lymph nodes [Unknown]
  - Colon cancer [Unknown]
